FAERS Safety Report 4503105-X (Version None)
Quarter: 2004Q4

REPORT INFORMATION
  Report Type: 
  Country: None (occurrence: None)
  Receive Date: 20041117
  Receipt Date: 20041007
  Transmission Date: 20050328
  Serious: Yes (Other)
  Sender: FDA-Public Use
  Company Number: JP-ROCHE-382609

PATIENT
  Age: 61 Year
  Sex: Female

DRUGS (9)
  1. PEGASYS [Suspect]
     Route: 058
     Dates: start: 20040713, end: 20040831
  2. PEGASYS [Suspect]
     Route: 058
     Dates: start: 20040910, end: 20040917
  3. PRAVASTATIN [Concomitant]
     Route: 048
     Dates: end: 20041001
  4. WARFARIN [Concomitant]
     Route: 048
  5. DIGITOXIN TAB [Concomitant]
     Dosage: FORM: ORAL FORMULATION (NOT OTHERWISE SPECIFIED)
     Route: 048
  6. PANALDINE [Concomitant]
     Dosage: GENERIC REPORTED AS: TICLOPIDINE HYDROCHLORIDE
     Route: 048
     Dates: end: 20041008
  7. ALDACTONE A [Concomitant]
     Route: 048
     Dates: end: 20041001
  8. GLYCYRON [Concomitant]
     Route: 048
     Dates: end: 20041001
  9. URSOSAN [Concomitant]
     Route: 048
     Dates: end: 20041001

REACTIONS (2)
  - ERYTHEMA MULTIFORME [None]
  - GENERAL PHYSICAL HEALTH DETERIORATION [None]
